FAERS Safety Report 24576512 (Version 3)
Quarter: 2024Q4

REPORT INFORMATION
  Report Type: Spontaneous
  Country: US (occurrence: US)
  Receive Date: 20241104
  Receipt Date: 20241227
  Transmission Date: 20250114
  Serious: Yes (Hospitalization)
  Sender: PFIZER
  Company Number: US-PFIZER INC-202400291898

PATIENT
  Age: 30 Year
  Sex: Female

DRUGS (1)
  1. TIVDAK [Suspect]
     Active Substance: TISOTUMAB VEDOTIN-TFTV
     Indication: Cervix carcinoma
     Dosage: 2 MG/KG

REACTIONS (4)
  - Rash [Recovering/Resolving]
  - Oedema [Recovering/Resolving]
  - Skin weeping [Recovering/Resolving]
  - Peripheral swelling [Recovering/Resolving]
